FAERS Safety Report 23448414 (Version 6)
Quarter: 2024Q1

REPORT INFORMATION
  Report Type: Spontaneous
  Country: US (occurrence: US)
  Receive Date: 20240127
  Receipt Date: 20240228
  Transmission Date: 20240410
  Serious: Yes (Hospitalization, Other)
  Sender: FDA-Public Use
  Company Number: US-UNITED THERAPEUTICS-UNT-2023-033809

PATIENT
  Sex: Female
  Weight: 57.143 kg

DRUGS (16)
  1. TYVASO DPI [Suspect]
     Active Substance: TREPROSTINIL
     Indication: Pulmonary arterial hypertension
     Dosage: 32 ?G, QID
     Dates: start: 2023
  2. TYVASO DPI [Suspect]
     Active Substance: TREPROSTINIL
     Dosage: UNK
     Dates: start: 20230105
  3. TYVASO DPI [Suspect]
     Active Substance: TREPROSTINIL
     Indication: Pulmonary arterial hypertension
     Dosage: UNK
  4. REMODULIN [Suspect]
     Active Substance: TREPROSTINIL
     Indication: Pulmonary arterial hypertension
     Dosage: 0.086 ?G/KG (PHARMACY PRE-FILLED WITH 2.8 ML, AT A RATE OF 31 MCL PER HOUR), CONTINUING
     Route: 058
  5. REMODULIN [Suspect]
     Active Substance: TREPROSTINIL
     Dosage: 0.086 ?G/KG (PHARMACY PRE-FILLED WITH 3 ML, AT A RATE OF 31 MCL PER HOUR), CONTINUING
     Route: 058
  6. REMODULIN [Suspect]
     Active Substance: TREPROSTINIL
     Dosage: 0.086 ?G/KG (SELF-FILLED CASSETTE WITH 2.7 ML, AT A RATE OF 31 MCL PER HOUR), CONTINUING
     Route: 058
  7. REMODULIN [Suspect]
     Active Substance: TREPROSTINIL
     Dosage: UNK
     Route: 058
     Dates: start: 20231213
  8. UPTRAVI [Suspect]
     Active Substance: SELEXIPAG
     Indication: Pulmonary arterial hypertension
     Dosage: 1000 ?G, BID
     Route: 048
     Dates: end: 2023
  9. UPTRAVI [Suspect]
     Active Substance: SELEXIPAG
     Dosage: 800 ?G, BID
     Route: 048
     Dates: start: 2023, end: 202401
  10. SUBOXONE [Concomitant]
     Active Substance: BUPRENORPHINE HYDROCHLORIDE\NALOXONE HYDROCHLORIDE
     Indication: Product used for unknown indication
     Dosage: UNK
     Route: 065
  11. LASIX [Concomitant]
     Active Substance: FUROSEMIDE
     Indication: Product used for unknown indication
     Dosage: UNK
     Route: 065
  12. SILDENAFIL CITRATE [Concomitant]
     Active Substance: SILDENAFIL CITRATE
     Indication: Product used for unknown indication
     Dosage: UNK
     Route: 065
  13. OPSUMIT [Concomitant]
     Active Substance: MACITENTAN
     Indication: Product used for unknown indication
     Dosage: UNK
     Route: 065
  14. DIGOXIN [Concomitant]
     Active Substance: DIGOXIN
     Indication: Product used for unknown indication
     Dosage: UNK
     Route: 065
  15. ONDANSETRON HYDROCHLORIDE [Concomitant]
     Active Substance: ONDANSETRON HYDROCHLORIDE
     Indication: Product used for unknown indication
     Dosage: UNK
     Route: 065
  16. SODIUM CHLORIDE [Concomitant]
     Active Substance: SODIUM CHLORIDE
     Indication: Product used for unknown indication
     Dosage: UNK
     Route: 065

REACTIONS (26)
  - Right ventricular failure [Unknown]
  - Drug tolerance decreased [Unknown]
  - Agitation [Unknown]
  - Headache [Unknown]
  - Restlessness [Unknown]
  - Restless legs syndrome [Not Recovered/Not Resolved]
  - Infusion site pain [Unknown]
  - Infusion site erythema [Unknown]
  - Illness [Unknown]
  - Nausea [Unknown]
  - Fatigue [Unknown]
  - Anxiety [Unknown]
  - Pain in extremity [Unknown]
  - Cardiac discomfort [Unknown]
  - Infusion site induration [Unknown]
  - Infusion site swelling [Unknown]
  - Device failure [Recovered/Resolved]
  - Device failure [Unknown]
  - Device leakage [Unknown]
  - Device failure [Unknown]
  - Device use error [Unknown]
  - Device leakage [Unknown]
  - Device failure [Unknown]
  - Device power source issue [Recovered/Resolved]
  - Wrong technique in product usage process [Unknown]
  - Device infusion issue [Unknown]

NARRATIVE: CASE EVENT DATE: 20230101
